FAERS Safety Report 8127112-3 (Version None)
Quarter: 2012Q1

REPORT INFORMATION
  Report Type: 
  Country: None (occurrence: None)
  Receive Date: 20120210
  Receipt Date: 20120202
  Transmission Date: 20120608
  Serious: Yes (Other)
  Sender: FDA-Public Use
  Company Number: US-US-EMD SERONO, INC.-7106863

PATIENT
  Sex: Female
  Weight: 68 kg

DRUGS (2)
  1. REBIF [Suspect]
     Dates: start: 20120126
  2. REBIF [Suspect]
     Indication: RELAPSING-REMITTING MULTIPLE SCLEROSIS
     Route: 058
     Dates: start: 20111112, end: 20111211

REACTIONS (6)
  - ASTHENIA [None]
  - PNEUMONIA [None]
  - GASTROINTESTINAL INFECTION [None]
  - WEIGHT DECREASED [None]
  - FATIGUE [None]
  - PAIN [None]
